FAERS Safety Report 4418758-4 (Version None)
Quarter: 2004Q3

REPORT INFORMATION
  Report Type: 
  Country: None (occurrence: None)
  Receive Date: 20040809
  Receipt Date: 20040108
  Transmission Date: 20050211
  Serious: No
  Sender: FDA-Public Use
  Company Number: US-GLAXOSMITHKLINE-A0491983A

PATIENT
  Age: 81 Year
  Sex: Female

DRUGS (7)
  1. PAXIL [Suspect]
     Indication: DEPRESSION
     Dosage: 40MG PER DAY
     Route: 048
     Dates: start: 20010101, end: 20031201
  2. PREVACID [Concomitant]
  3. CLARINEX [Concomitant]
  4. MIACALCIN [Concomitant]
  5. LOMOTIL [Concomitant]
  6. LESCOL [Concomitant]
  7. BEXTRA [Concomitant]

REACTIONS (3)
  - DIZZINESS [None]
  - SOMNOLENCE [None]
  - WEIGHT INCREASED [None]
